FAERS Safety Report 9501760 (Version 1)
Quarter: 2013Q1

REPORT INFORMATION
  Report Type: Spontaneous
  Country: US (occurrence: None)
  Receive Date: 20130107
  Receipt Date: 20130107
  Transmission Date: 20140127
  Serious: No
  Sender: FDA-Public Use
  Company Number: PHEH2012US018220

PATIENT
  Age: 58 Year
  Sex: Female
  Weight: 62.6 kg

DRUGS (1)
  1. GILENYA [Suspect]
     Indication: MULTIPLE SCLEROSIS
     Route: 048
     Dates: start: 20120815

REACTIONS (8)
  - Musculoskeletal discomfort [None]
  - Decreased appetite [None]
  - Pyrexia [None]
  - Fatigue [None]
  - Cough [None]
  - Back pain [None]
  - Headache [None]
  - General physical health deterioration [None]
